FAERS Safety Report 23329698 (Version 1)
Quarter: 2023Q4

REPORT INFORMATION
  Report Type: Report from Study
  Country: US (occurrence: US)
  Receive Date: 20231222
  Receipt Date: 20231222
  Transmission Date: 20240110
  Serious: No
  Sender: FDA-Public Use
  Company Number: US-ACADIA PHARMACEUTICALS INC.-ACA-2023-TRF-005580

PATIENT
  Age: 20 Year
  Sex: Female

DRUGS (2)
  1. DAYBUE [Suspect]
     Active Substance: TROFINETIDE
     Dosage: SLOW AND TRITIATED UP
     Route: 065
     Dates: start: 20230630
  2. DAYBUE [Suspect]
     Active Substance: TROFINETIDE
     Dosage: 40 MILLILITER, BID
     Route: 065

REACTIONS (4)
  - Bruxism [Unknown]
  - Screaming [Unknown]
  - Emotional distress [Unknown]
  - Abdominal distension [Unknown]
